FAERS Safety Report 9344144 (Version 1)
Quarter: 2013Q2

REPORT INFORMATION
  Report Type: Spontaneous
  Country: GB (occurrence: GB)
  Receive Date: 20130612
  Receipt Date: 20130612
  Transmission Date: 20140414
  Serious: Yes (Other)
  Sender: FDA-Public Use
  Company Number: GB-PFIZER INC-2013175123

PATIENT
  Age: 53 Year
  Sex: Male
  Weight: 63 kg

DRUGS (1)
  1. CHAMPIX [Suspect]
     Dosage: 1 MG, UNK
     Route: 048
     Dates: start: 20130429, end: 20130524

REACTIONS (3)
  - Depressed mood [Recovering/Resolving]
  - Agitation [Recovering/Resolving]
  - Personality change [Unknown]
